FAERS Safety Report 18757059 (Version 5)
Quarter: 2021Q3

REPORT INFORMATION
  Report Type: Report from Study
  Country: IE (occurrence: IE)
  Receive Date: 20210119
  Receipt Date: 20210825
  Transmission Date: 20211014
  Serious: Yes (Hospitalization)
  Sender: FDA-Public Use
  Company Number: IE-ROCHE-2749652

PATIENT
  Age: 45 Year
  Sex: Female
  Weight: 81 kg

DRUGS (2)
  1. ATEZOLIZUMAB. [Suspect]
     Active Substance: ATEZOLIZUMAB
     Indication: TRIPLE NEGATIVE BREAST CANCER
     Dosage: MOST RECENT DOSE ON 30 DEC 2020 AT 840 MG
     Route: 041
     Dates: start: 20201230
  2. PACLITAXEL. [Suspect]
     Active Substance: PACLITAXEL
     Indication: TRIPLE NEGATIVE BREAST CANCER
     Dosage: WHICH WAS MOST RECENT DOSE 30 DEC 2020 AT 144 MG
     Route: 042
     Dates: start: 20201230

REACTIONS (2)
  - Soft tissue infection [Recovered/Resolved]
  - Skin infection [Recovered/Resolved]

NARRATIVE: CASE EVENT DATE: 20210112
